FAERS Safety Report 10744584 (Version 1)
Quarter: 2015Q1

REPORT INFORMATION
  Report Type: Spontaneous
  Country: US (occurrence: None)
  Receive Date: 20150126
  Receipt Date: 20150126
  Transmission Date: 20150721
  Serious: Yes (Life-Threatening, Disabling)
  Sender: FDA-Public Use
  Company Number: None

PATIENT
  Age: 46 Year
  Sex: Female
  Weight: 54.43 kg

DRUGS (6)
  1. GEODON [Suspect]
     Active Substance: ZIPRASIDONE HYDROCHLORIDE\ZIPRASIDONE MESYLATE
     Indication: MANIA
     Dosage: 1 PILL
     Route: 048
     Dates: end: 20150121
  2. GEODON [Suspect]
     Active Substance: ZIPRASIDONE HYDROCHLORIDE\ZIPRASIDONE MESYLATE
     Indication: PANIC DISORDER
     Dosage: 1 PILL
     Route: 048
     Dates: end: 20150121
  3. ALPRAZOLAM. [Suspect]
     Active Substance: ALPRAZOLAM
     Indication: PANIC DISORDER
     Dosage: 1 PILL
     Route: 048
     Dates: start: 19991215, end: 20141223
  4. GEODON [Suspect]
     Active Substance: ZIPRASIDONE HYDROCHLORIDE\ZIPRASIDONE MESYLATE
     Indication: BIPOLAR DISORDER
     Dosage: 1 PILL
     Route: 048
     Dates: end: 20150121
  5. ALPRAZOLAM. [Suspect]
     Active Substance: ALPRAZOLAM
     Indication: ANXIETY
     Dosage: 1 PILL
     Route: 048
     Dates: start: 19991215, end: 20141223
  6. GEODON [Suspect]
     Active Substance: ZIPRASIDONE HYDROCHLORIDE\ZIPRASIDONE MESYLATE
     Dosage: 1 PILL
     Route: 048
     Dates: end: 20150121

REACTIONS (8)
  - Fear [None]
  - Drug interaction [None]
  - Feeling abnormal [None]
  - Panic attack [None]
  - Confusional state [None]
  - Generalised tonic-clonic seizure [None]
  - Drug withdrawal syndrome [None]
  - Feeling of despair [None]

NARRATIVE: CASE EVENT DATE: 20141010
